FAERS Safety Report 9225166 (Version 1)
Quarter: 2013Q2

REPORT INFORMATION
  Report Type: Spontaneous
  Country: US (occurrence: US)
  Receive Date: 20130411
  Receipt Date: 20130411
  Transmission Date: 20140414
  Serious: Yes (Other)
  Sender: FDA-Public Use
  Company Number: US-MYLANLABS-2013S1005660

PATIENT
  Age: 51 Year
  Sex: Female
  Weight: 86.18 kg

DRUGS (12)
  1. FENTANYL TRANSDERMAL SYSTEM [Suspect]
     Indication: BACK PAIN
     Dosage: Q48H
     Route: 062
     Dates: start: 2011, end: 20130311
  2. HYDROCODONE [Concomitant]
     Indication: PAIN
  3. OMEPRAZOLE [Concomitant]
     Indication: GASTROINTESTINAL DISORDER
  4. BACLOFEN [Concomitant]
     Indication: MUSCLE SPASMS
  5. METOPROLOL [Concomitant]
     Indication: BLOOD PRESSURE INCREASED
  6. GABAPENTIN [Concomitant]
     Indication: NEUROPATHY PERIPHERAL
  7. SIMVASTATIN [Concomitant]
     Indication: BLOOD CHOLESTEROL INCREASED
  8. HCTZ [Concomitant]
     Indication: BLOOD PRESSURE INCREASED
  9. VESICARE [Concomitant]
     Indication: HYPERTONIC BLADDER
  10. LEVOTHYROXINE [Concomitant]
     Indication: HYPOTHYROIDISM
  11. AMPICILLIN [Concomitant]
     Indication: LYME DISEASE
     Route: 042
  12. CELEXA [Concomitant]

REACTIONS (7)
  - Drug effect increased [Recovered/Resolved]
  - Euphoric mood [Recovered/Resolved]
  - Confusional state [Recovered/Resolved]
  - Blood potassium decreased [Recovered/Resolved]
  - Renal function test abnormal [Not Recovered/Not Resolved]
  - Hypoaesthesia [Recovered/Resolved]
  - Paraesthesia [Recovered/Resolved]
